FAERS Safety Report 22387167 (Version 1)
Quarter: 2023Q2

REPORT INFORMATION
  Report Type: Other
  Country: US (occurrence: None)
  Receive Date: 20230531
  Receipt Date: 20230531
  Transmission Date: 20230721
  Serious: Yes (Other)
  Sender: FDA-Public Use
  Company Number: US-ROCHE-3357940

PATIENT
  Age: 15 Year
  Sex: Female

DRUGS (2)
  1. XOLAIR [Suspect]
     Active Substance: OMALIZUMAB
     Indication: Idiopathic urticaria
     Dosage: ONGOING: NO
     Route: 058
     Dates: end: 20230224
  2. XOLAIR [Suspect]
     Active Substance: OMALIZUMAB

REACTIONS (8)
  - Anaphylactic reaction [Recovered/Resolved]
  - Asthma [Recovered/Resolved]
  - Urticaria [Recovered/Resolved]
  - Pyrexia [Recovered/Resolved]
  - Pruritus [Recovered/Resolved]
  - Swelling face [Recovered/Resolved]
  - Pharyngeal swelling [Recovered/Resolved]
  - Swollen tongue [Recovered/Resolved]

NARRATIVE: CASE EVENT DATE: 20230501
